FAERS Safety Report 16289889 (Version 1)
Quarter: 2019Q2

REPORT INFORMATION
  Report Type: Spontaneous
  Country: US (occurrence: US)
  Receive Date: 20190508
  Receipt Date: 20190508
  Transmission Date: 20190711
  Serious: No
  Sender: FDA-Public Use
  Company Number: None

PATIENT
  Age: 49 Year
  Sex: Female
  Weight: 84.15 kg

DRUGS (12)
  1. AMBIEN [Concomitant]
     Active Substance: ZOLPIDEM TARTRATE
  2. CARVEDILOL. [Concomitant]
     Active Substance: CARVEDILOL
  3. WELLBUTRIN [Concomitant]
     Active Substance: BUPROPION HYDROCHLORIDE
  4. THYROID [Concomitant]
     Active Substance: LEVOTHYROXINE\LIOTHYRONINE
  5. TIZANIDINE. [Concomitant]
     Active Substance: TIZANIDINE
  6. OXCARBAZEPINE. [Concomitant]
     Active Substance: OXCARBAZEPINE
  7. REQUIP [Concomitant]
     Active Substance: ROPINIROLE HYDROCHLORIDE
  8. WP [Concomitant]
  9. BACLOFEN. [Concomitant]
     Active Substance: BACLOFEN
  10. VITAMIN D3 [Concomitant]
     Active Substance: CHOLECALCIFEROL
  11. AIMOVIG [Suspect]
     Active Substance: ERENUMAB-AOOE
     Indication: MIGRAINE
     Dosage: ?          QUANTITY:1 INJECTION(S);OTHER FREQUENCY:ONCE A MONTH;?
     Route: 058
     Dates: start: 20190408, end: 20190508
  12. LIPITOR [Concomitant]
     Active Substance: ATORVASTATIN CALCIUM

REACTIONS (10)
  - Myalgia [None]
  - Arthralgia [None]
  - Alopecia [None]
  - Neck pain [None]
  - Vision blurred [None]
  - Anxiety [None]
  - Neuralgia [None]
  - Fatigue [None]
  - Headache [None]
  - Abnormal dreams [None]

NARRATIVE: CASE EVENT DATE: 20190508
